FAERS Safety Report 5951273-5 (Version None)
Quarter: 2008Q4

REPORT INFORMATION
  Report Type: 
  Country: None (occurrence: None)
  Receive Date: 20081112
  Receipt Date: 20081112
  Transmission Date: 20090506
  Serious: No
  Sender: FDA-Public Use
  Company Number: None

PATIENT
  Sex: Male
  Weight: 70 kg

DRUGS (14)
  1. CYTARABINE [Suspect]
     Dosage: 1330 MG
  2. DAUNORUBICIN HCL [Suspect]
     Dosage: 261 MG
  3. G-CSF (FILGRASTIM, AMGEN) [Suspect]
     Dosage: 4290 MG
  4. DIFLUCAN [Concomitant]
  5. FLAGYL [Concomitant]
  6. FLOMAX [Concomitant]
  7. IMDUR [Concomitant]
  8. LEVAQUIN [Concomitant]
  9. LISINOPRIL [Concomitant]
  10. NITROGLYCERIN [Concomitant]
  11. OXYCONTIN [Concomitant]
  12. OXYCODONE HCL [Concomitant]
  13. PROTONIX [Concomitant]
  14. TOPROL-XL [Concomitant]

REACTIONS (3)
  - CONJUNCTIVITIS [None]
  - HYPERGLYCAEMIA [None]
  - HYPERHIDROSIS [None]
